FAERS Safety Report 19075773 (Version 2)
Quarter: 2021Q2

REPORT INFORMATION
  Report Type: Spontaneous
  Country: US (occurrence: US)
  Receive Date: 20210330
  Receipt Date: 20210408
  Transmission Date: 20210717
  Serious: Yes (Other)
  Sender: FDA-Public Use
  Company Number: US-PRINSTON PHARMACEUTICAL INC.-2021PRN00115

PATIENT
  Age: 69 Year
  Sex: Female
  Weight: 80.27 kg

DRUGS (11)
  1. L?ARGININE [Concomitant]
     Active Substance: ARGININE
  2. BIOTIN [Concomitant]
     Active Substance: BIOTIN
  3. B12 INJECTION [Concomitant]
     Dosage: UNK, 1X/MONTH
  4. VITAMIN B2 [Concomitant]
     Active Substance: RIBOFLAVIN
  5. COVID?19 VACCINE NOS. [Suspect]
     Active Substance: COVID-19 VACCINE NOS
     Dosage: UNK
     Dates: start: 20210210, end: 20210303
  6. VITAMIN D3 [Concomitant]
     Active Substance: CHOLECALCIFEROL
  7. VITMAIN E [Concomitant]
  8. UNSPECIFIED PRESCRIPTION MEDICATIONS [Concomitant]
  9. FUROSEMIDE. [Suspect]
     Active Substance: FUROSEMIDE
     Indication: FLUID RETENTION
     Dosage: 60 MG, 2X/DAY
     Route: 048
  10. VITAMIN D2 [Concomitant]
     Active Substance: ERGOCALCIFEROL
  11. GINKGO BILOBA [Concomitant]
     Active Substance: GINKGO

REACTIONS (9)
  - Pain [Recovered/Resolved]
  - Chest pain [Unknown]
  - Renal failure [Not Recovered/Not Resolved]
  - Angiopathy [Not Recovered/Not Resolved]
  - Tenderness [Unknown]
  - Weight decreased [Not Recovered/Not Resolved]
  - Peripheral swelling [Recovered/Resolved]
  - Pyrexia [Recovered/Resolved]
  - Nausea [Recovered/Resolved]

NARRATIVE: CASE EVENT DATE: 2020
